FAERS Safety Report 5154430-3 (Version None)
Quarter: 2006Q4

REPORT INFORMATION
  Report Type: 
  Country: None (occurrence: None)
  Receive Date: 20061114
  Receipt Date: 20061101
  Transmission Date: 20070319
  Serious: Yes (Other)
  Sender: FDA-Public Use
  Company Number: 2006135623

PATIENT
  Age: 82 Year
  Sex: Female

DRUGS (2)
  1. EPANUTIN SUSPENSION (PHENYTOIN SODIUM) [Suspect]
     Dosage: 200 MG (100 MG, 2 IN 1 D)
  2. ANTIHYPERTENSIVES (ANTIHYPERTENSIVES) [Concomitant]

REACTIONS (1)
  - ECZEMA [None]
